FAERS Safety Report 11054786 (Version 1)
Quarter: 2015Q2

REPORT INFORMATION
  Report Type: Spontaneous
  Country: FR (occurrence: None)
  Receive Date: 20150420
  Receipt Date: 20150420
  Transmission Date: 20150821
  Serious: Yes (Hospitalization)
  Sender: FDA-Public Use
  Company Number: 20151098

PATIENT
  Age: 71 Year
  Sex: Male

DRUGS (14)
  1. CRESTOR [Concomitant]
     Active Substance: ROSUVASTATIN CALCIUM
  2. DIFFU K/POTASSIUM CHLORIDE [Concomitant]
  3. SOLUPRED/PREDNISOLONE [Concomitant]
  4. NOVORAPID/INSULIN ASPART [Concomitant]
  5. LASILIX/FUROSEMIDE [Concomitant]
  6. STILNOX/ZOLPIDEM [Concomitant]
  7. MOVICOL/MACROGOL 3350, POTASSIUM CHLORIDE, SODIUM CHLORIDE, SODIUM HYDROGEN CARBONATE [Concomitant]
  8. TRAMADOL HYDROCHLORIDE. [Concomitant]
     Active Substance: TRAMADOL HYDROCHLORIDE
  9. DAFALGAN (PARACETAMOL) [Concomitant]
  10. PLAVIX [Concomitant]
     Active Substance: CLOPIDOGREL BISULFATE
  11. LANTUS/INSULIN GLARGINE [Concomitant]
  12. METOJECT [Suspect]
     Active Substance: METHOTREXATE SODIUM
     Indication: RHEUMATOID ARTHRITIS
     Dosage: 1 X 1 DOSAGE FORM IN 1 WEEK
     Route: 042
     Dates: start: 20150227, end: 20150304
  13. TOPALGIC/TRAMADOL [Concomitant]
  14. EUPANTOL/PANTOPRAZOLE [Concomitant]

REACTIONS (2)
  - Vitamin B12 deficiency [None]
  - Pancytopenia [None]

NARRATIVE: CASE EVENT DATE: 20150305
